FAERS Safety Report 13718362 (Version 1)
Quarter: 2017Q3

REPORT INFORMATION
  Report Type: Spontaneous
  Country: US (occurrence: US)
  Receive Date: 20170705
  Receipt Date: 20170705
  Transmission Date: 20171127
  Serious: Yes (Hospitalization)
  Sender: FDA-Public Use
  Company Number: US-TURING PHARMACEUTICALS-2017TNG00032

PATIENT
  Age: 26 Year
  Sex: Male

DRUGS (3)
  1. LEUKERAN [Concomitant]
     Active Substance: CHLORAMBUCIL
     Dosage: 2 MG, UNK
     Route: 048
  2. DARAPRIM [Suspect]
     Active Substance: PYRIMETHAMINE
     Indication: TOXOPLASMOSIS
     Dosage: UNK
     Dates: start: 20161221
  3. STRIBILD [Concomitant]
     Active Substance: COBICISTAT\ELVITEGRAVIR\EMTRICITABINE\TENOFOVIR DISOPROXIL FUMARATE
     Dosage: UNK, 1X/DAY
     Route: 048

REACTIONS (2)
  - Drug dose omission [Recovered/Resolved]
  - Toxoplasmosis [Unknown]

NARRATIVE: CASE EVENT DATE: 201704
